FAERS Safety Report 10690806 (Version 1)
Quarter: 2015Q1

REPORT INFORMATION
  Report Type: Spontaneous
  Country: US (occurrence: None)
  Receive Date: 20150102
  Receipt Date: 20150102
  Transmission Date: 20150720
  Serious: Yes (Hospitalization)
  Sender: FDA-Public Use
  Company Number: US-ZYDUS-006203

PATIENT
  Age: 8 Year
  Sex: Male

DRUGS (3)
  1. DEXMETHYLPHENIDATE [Suspect]
     Active Substance: DEXMETHYLPHENIDATE HYDROCHLORIDE
     Indication: HALLUCINATION, AUDITORY
  2. RISPERIDONE. [Suspect]
     Active Substance: RISPERIDONE
     Indication: HALLUCINATION, AUDITORY
  3. GUANFACINE HYDROCHLORIDE. [Suspect]
     Active Substance: GUANFACINE HYDROCHLORIDE
     Indication: ATTENTION DEFICIT/HYPERACTIVITY DISORDER

REACTIONS (10)
  - Accidental overdose [None]
  - Hyperhidrosis [None]
  - Sinus bradycardia [None]
  - Medication error [None]
  - Drug interaction [None]
  - Depressed level of consciousness [None]
  - Feeling cold [None]
  - Inappropriate schedule of drug administration [None]
  - Hypotension [None]
  - Fatigue [None]
